FAERS Safety Report 10032986 (Version 1)
Quarter: 2014Q1

REPORT INFORMATION
  Report Type: Spontaneous
  Country: FR (occurrence: FR)
  Receive Date: 20140324
  Receipt Date: 20140324
  Transmission Date: 20141002
  Serious: Yes (Other)
  Sender: FDA-Public Use
  Company Number: FR-CELGENEUS-056-POMAL-14031863

PATIENT
  Sex: 0

DRUGS (1)
  1. POMALYST [Suspect]
     Indication: PLASMA CELL MYELOMA
     Dosage: 4 MILLIGRAM
     Route: 048

REACTIONS (14)
  - Neutropenia [Unknown]
  - Thrombocytopenia [Unknown]
  - Bronchospasm [Unknown]
  - Neutropenia [Unknown]
  - Syncope [Unknown]
  - Paraesthesia [Unknown]
  - Infection [Unknown]
  - Skin exfoliation [Unknown]
  - Hyperhidrosis [Unknown]
  - Thrombocytopenia [Unknown]
  - Neuropathy peripheral [Unknown]
  - Dizziness [Unknown]
  - Cough [Unknown]
  - Diarrhoea [Unknown]
